FAERS Safety Report 25396545 (Version 1)
Quarter: 2025Q2

REPORT INFORMATION
  Report Type: Spontaneous
  Country: CA (occurrence: None)
  Receive Date: 20250603
  Receipt Date: 20250603
  Transmission Date: 20250716
  Serious: Yes (Disabling)
  Sender: FDA-CTU
  Company Number: None

PATIENT
  Age: 33 Year
  Sex: Female
  Weight: 78.75 kg

DRUGS (6)
  1. VENLAFAXINE [Suspect]
     Active Substance: VENLAFAXINE HYDROCHLORIDE
     Indication: Premenstrual dysphoric disorder
     Route: 048
     Dates: start: 20130917, end: 20190201
  2. IRON [Concomitant]
     Active Substance: IRON
  3. collagen powder [Concomitant]
  4. AMINO ACIDS [Concomitant]
     Active Substance: AMINO ACIDS
  5. VITAMINS [Concomitant]
     Active Substance: VITAMINS
  6. VITAMIN D [Concomitant]
     Active Substance: VITAMIN D NOS

REACTIONS (24)
  - Withdrawal syndrome [None]
  - Muscle tightness [None]
  - Head discomfort [None]
  - Headache [None]
  - Skin burning sensation [None]
  - Memory impairment [None]
  - Suicidal ideation [None]
  - Homicidal ideation [None]
  - Thinking abnormal [None]
  - Ear discomfort [None]
  - Dizziness [None]
  - Akathisia [None]
  - Mood swings [None]
  - Crying [None]
  - Depression [None]
  - Anxiety [None]
  - Anxiety [None]
  - Genital hypoaesthesia [None]
  - Hypoaesthesia [None]
  - Insomnia [None]
  - Nightmare [None]
  - Night sweats [None]
  - Heart rate decreased [None]
  - Disability [None]

NARRATIVE: CASE EVENT DATE: 20200625
